FAERS Safety Report 24185454 (Version 1)
Quarter: 2024Q3

REPORT INFORMATION
  Report Type: Report from Study
  Country: EG (occurrence: EG)
  Receive Date: 20240807
  Receipt Date: 20240807
  Transmission Date: 20241017
  Serious: Yes (Disabling)
  Sender: SANDOZ
  Company Number: EG-SANDOZ-SDZ2024EG069816

PATIENT
  Sex: Female

DRUGS (1)
  1. OMNITROPE [Suspect]
     Active Substance: SOMATROPIN
     Indication: Growth hormone deficiency
     Dosage: 0.6 MG SOLUTION IN CARTRIDGE
     Route: 065
     Dates: start: 20220224

REACTIONS (5)
  - Injection site haemorrhage [Recovering/Resolving]
  - Injection site pain [Recovering/Resolving]
  - Off label use [Unknown]
  - Drug administered in wrong device [Unknown]
  - Product availability issue [Unknown]
